FAERS Safety Report 4338906-4 (Version None)
Quarter: 2004Q2

REPORT INFORMATION
  Report Type: 
  Country: None (occurrence: None)
  Receive Date: 20040409
  Receipt Date: 20040330
  Transmission Date: 20050107
  Serious: Yes (Other)
  Sender: FDA-Public Use
  Company Number: 055-20785-04030760

PATIENT
  Sex: 0

DRUGS (2)
  1. THALIDOMIDE (THALIDOMIDE) [Suspect]
     Indication: RENAL CELL CARCINOMA STAGE UNSPECIFIED
     Dosage: 100 MG TITRATED TO 300 MG, QD, ORAL
     Route: 048
  2. INTERFERON ALFA-2B (INTERFERON ALFA-2B) (INJECTION) [Suspect]
     Indication: RENAL CELL CARCINOMA STAGE UNSPECIFIED
     Dosage: 18 MU/ML, OD, SUBCUTANEOUS
     Route: 058

REACTIONS (1)
  - HYPERTHYROIDISM [None]
